FAERS Safety Report 14928304 (Version 1)
Quarter: 2018Q2

REPORT INFORMATION
  Report Type: Spontaneous
  Country: BR (occurrence: BR)
  Receive Date: 20180523
  Receipt Date: 20180523
  Transmission Date: 20180711
  Serious: Yes (Other)
  Sender: FDA-Public Use
  Company Number: PHHY2017BR153043

PATIENT
  Sex: Female
  Weight: 77 kg

DRUGS (1)
  1. STALEVO [Suspect]
     Active Substance: CARBIDOPA\ENTACAPONE\LEVODOPA
     Indication: PARKINSON^S DISEASE
     Dosage: 1 DF, BID (1 TAB MORNING AND 1 IN NIGHT)
     Route: 065

REACTIONS (7)
  - Liver injury [Unknown]
  - Chromaturia [Recovering/Resolving]
  - Ageusia [Recovering/Resolving]
  - Hypoaesthesia oral [Unknown]
  - Musculoskeletal stiffness [Recovering/Resolving]
  - Pyrexia [Recovering/Resolving]
  - Dry mouth [Recovering/Resolving]
